FAERS Safety Report 7973381-X (Version None)
Quarter: 2011Q4

REPORT INFORMATION
  Report Type: 
  Country: None (occurrence: None)
  Receive Date: 20111213
  Receipt Date: 20110823
  Transmission Date: 20120403
  Serious: Yes (Hospitalization)
  Sender: FDA-Public Use
  Company Number: US-AMGEN-USASP2011043220

PATIENT
  Age: 64 Year
  Sex: Male

DRUGS (18)
  1. PYRIDOXINE HCL [Concomitant]
  2. REPAGLINIDE [Concomitant]
  3. AMLODIPINE [Concomitant]
     Dosage: UNK
  4. ZITHROMAX [Concomitant]
  5. SEVELAMER [Concomitant]
  6. LANTUS [Concomitant]
  7. VITAMIN B-12 [Concomitant]
  8. ARANESP [Suspect]
     Indication: RENAL FAILURE CHRONIC
     Dosage: 100 MUG, Q2WK
     Route: 058
     Dates: start: 20110131
  9. DIOVAN [Concomitant]
  10. FOLIC ACID [Concomitant]
  11. NIFEREX                            /00198301/ [Concomitant]
  12. CLONIDINE [Concomitant]
  13. SIMVASTATIN [Concomitant]
  14. HYDRALAZINE HCL [Concomitant]
  15. ROCALTROL [Concomitant]
  16. SODIUM POLYSTYRENE SULFONATE [Concomitant]
     Dosage: UNK
  17. LASIX [Concomitant]
  18. LASIX [Concomitant]

REACTIONS (2)
  - CARDIAC FAILURE CONGESTIVE [None]
  - PNEUMONIA [None]
